FAERS Safety Report 8249685 (Version 2)
Quarter: 2014Q3

REPORT INFORMATION
  Report Type: Spontaneous
  Country: US (occurrence: US)
  Receive Date: 20111117
  Receipt Date: 20140902
  Transmission Date: 20150326
  Serious: Yes (Other)
  Sender: FDA-Public Use
  Company Number: US-ASTRAZENECA-2011SE67765

PATIENT
  Age: 39 Year
  Sex: Male
  Weight: 72.6 kg

DRUGS (2)
  1. ALBUTOL PROAIR [Concomitant]
     Indication: PROPHYLAXIS
     Dosage: 1 PUFF, 90 MCG AS NEEDED
  2. SYMBICORT [Suspect]
     Active Substance: BUDESONIDE\FORMOTEROL FUMARATE DIHYDRATE
     Indication: CHRONIC OBSTRUCTIVE PULMONARY DISEASE
     Dosage: 2 PUFFS BID
     Route: 055

REACTIONS (5)
  - Haemoptysis [Unknown]
  - Drug dose omission [Recovered/Resolved]
  - Gait disturbance [Unknown]
  - Dyspnoea [Unknown]
  - Chest discomfort [Unknown]
